FAERS Safety Report 19004594 (Version 1)
Quarter: 2021Q1

REPORT INFORMATION
  Report Type: Spontaneous
  Country: US (occurrence: US)
  Receive Date: 20210313
  Receipt Date: 20210313
  Transmission Date: 20210420
  Serious: No
  Sender: FDA-Public Use
  Company Number: US-VISTAPHARM, INC.-VER202007-001216

PATIENT
  Age: 84 Year
  Sex: Female

DRUGS (1)
  1. NYSTATIN. [Suspect]
     Active Substance: NYSTATIN
     Indication: CANDIDA INFECTION
     Dosage: UNKNOWN
     Route: 048

REACTIONS (4)
  - Liquid product physical issue [Unknown]
  - Product quality issue [Unknown]
  - Product solubility abnormal [Unknown]
  - Drug ineffective [Unknown]
